FAERS Safety Report 14730541 (Version 1)
Quarter: 2018Q2

REPORT INFORMATION
  Report Type: Report from Study
  Country: None (occurrence: DE)
  Receive Date: 20180406
  Receipt Date: 20180406
  Transmission Date: 20180711
  Serious: Yes (Hospitalization)
  Sender: FDA-Public Use
  Company Number: DE-BAUSCH-BL-2018-008871

PATIENT
  Age: 78 Year
  Sex: Female
  Weight: 63 kg

DRUGS (6)
  1. DEXAMETHASONE. [Suspect]
     Active Substance: DEXAMETHASONE
     Route: 065
     Dates: start: 20150720, end: 20150810
  2. POMALIDOMID [Suspect]
     Active Substance: POMALIDOMIDE
     Indication: PLASMA CELL MYELOMA
     Route: 048
     Dates: start: 20141222, end: 20141228
  3. DEXAMETHASONE. [Suspect]
     Active Substance: DEXAMETHASONE
     Indication: PLASMA CELL MYELOMA
     Route: 065
     Dates: start: 20141124, end: 20150706
  4. POMALIDOMID [Suspect]
     Active Substance: POMALIDOMIDE
     Route: 048
     Dates: start: 20141124, end: 20141214
  5. POMALIDOMID [Suspect]
     Active Substance: POMALIDOMIDE
     Route: 048
     Dates: start: 20141229, end: 20150705
  6. POMALIDOMID [Suspect]
     Active Substance: POMALIDOMIDE
     Route: 048
     Dates: start: 20150720, end: 20150809

REACTIONS (3)
  - Pneumonia [Recovered/Resolved]
  - Dyspnoea [Recovered/Resolved]
  - Anaemia [Not Recovered/Not Resolved]

NARRATIVE: CASE EVENT DATE: 20150713
